FAERS Safety Report 7472723-1 (Version None)
Quarter: 2011Q2

REPORT INFORMATION
  Report Type: 
  Country: None (occurrence: None)
  Receive Date: 20110502
  Receipt Date: 20110421
  Transmission Date: 20111010
  Serious: Yes (Other)
  Sender: FDA-Public Use
  Company Number: 2009SP038965

PATIENT
  Age: 20 Year
  Sex: Female
  Weight: 43.0917 kg

DRUGS (8)
  1. LORTAB [Suspect]
     Indication: HEADACHE
  2. IBUPROFEN [Concomitant]
  3. ALBUTEROL [Concomitant]
  4. EXCEDRNI MIGRAINE [Concomitant]
  5. NUVARING [Suspect]
     Indication: MENSTRUAL DISORDER
     Dates: start: 20080320, end: 20090726
  6. NUVARING [Suspect]
     Indication: CONTRACEPTION
     Dates: start: 20080320, end: 20090726
  7. NUVARING [Suspect]
     Indication: MENSTRUAL DISORDER
     Dates: start: 20050401, end: 20070101
  8. NUVARING [Suspect]
     Indication: CONTRACEPTION
     Dates: start: 20050401, end: 20070101

REACTIONS (27)
  - PROTEIN C DEFICIENCY [None]
  - ANXIETY [None]
  - CERVICAL DYSPLASIA [None]
  - OVARIAN CYST RUPTURED [None]
  - PAROTITIS [None]
  - DEPRESSION [None]
  - CONSTIPATION [None]
  - INTERNATIONAL NORMALISED RATIO INCREASED [None]
  - DEEP VEIN THROMBOSIS [None]
  - PNEUMONIA [None]
  - HAEMORRHOIDS [None]
  - RENAL VEIN THROMBOSIS [None]
  - SUICIDAL IDEATION [None]
  - RHINITIS ALLERGIC [None]
  - THROMBOSIS [None]
  - PYELONEPHRITIS [None]
  - SINUSITIS [None]
  - PANIC ATTACK [None]
  - THIRST [None]
  - AMENORRHOEA [None]
  - PULMONARY EMBOLISM [None]
  - MIGRAINE [None]
  - ESCHERICHIA URINARY TRACT INFECTION [None]
  - ASTHMA [None]
  - CANDIDIASIS [None]
  - LOWER RESPIRATORY TRACT INFECTION [None]
  - GASTRITIS [None]
